FAERS Safety Report 14768170 (Version 2)
Quarter: 2018Q2

REPORT INFORMATION
  Report Type: Spontaneous
  Country: US (occurrence: US)
  Receive Date: 20180417
  Receipt Date: 20180501
  Transmission Date: 20180711
  Serious: Yes (Other)
  Sender: FDA-Public Use
  Company Number: US-ABBVIE-18P-163-2265366-00

PATIENT
  Sex: Male
  Weight: 108.96 kg

DRUGS (4)
  1. SYNTHROID [Suspect]
     Active Substance: LEVOTHYROXINE SODIUM
     Indication: HYPOTHYROIDISM
     Route: 048
     Dates: start: 2017
  2. MULTIVITAMIN [Concomitant]
     Active Substance: VITAMINS
     Indication: PRODUCT USED FOR UNKNOWN INDICATION
  3. SYNTHROID [Suspect]
     Active Substance: LEVOTHYROXINE SODIUM
     Route: 048
  4. LEVOTHYROXINE. [Suspect]
     Active Substance: LEVOTHYROXINE
     Indication: HYPOTHYROIDISM
     Route: 048
     Dates: start: 2017, end: 2017

REACTIONS (17)
  - Secretion discharge [Unknown]
  - Urinary hesitation [Recovered/Resolved]
  - Arthropod bite [Recovered/Resolved]
  - Constipation [Recovered/Resolved]
  - Retroperitoneal oedema [Recovering/Resolving]
  - Sputum discoloured [Not Recovered/Not Resolved]
  - Micturition disorder [Unknown]
  - Throat irritation [Recovering/Resolving]
  - Intestinal obstruction [Recovered/Resolved]
  - Blood thyroid stimulating hormone increased [Not Recovered/Not Resolved]
  - Dysuria [Not Recovered/Not Resolved]
  - Dysgeusia [Not Recovered/Not Resolved]
  - Product quality issue [Not Recovered/Not Resolved]
  - Intestinal obstruction [Unknown]
  - Dehydration [Recovered/Resolved]
  - Feeling abnormal [Unknown]
  - Specific gravity urine increased [Recovered/Resolved]

NARRATIVE: CASE EVENT DATE: 2017
